FAERS Safety Report 25324012 (Version 1)
Quarter: 2025Q2

REPORT INFORMATION
  Report Type: Spontaneous
  Country: GB (occurrence: GB)
  Receive Date: 20250516
  Receipt Date: 20250516
  Transmission Date: 20250717
  Serious: Yes (Other)
  Sender: HIKMA
  Company Number: None

PATIENT
  Weight: 9 kg

DRUGS (4)
  1. CIPROFLOXACIN [Suspect]
     Active Substance: CIPROFLOXACIN
     Indication: Endocarditis bacterial
     Dosage: 94 MILLIGRAM, Q8H
     Route: 065
     Dates: start: 20250420, end: 20250424
  2. DAPTOMYCIN [Concomitant]
     Active Substance: DAPTOMYCIN
     Indication: Endocarditis bacterial
     Dosage: 94 MILLIGRAM, QD
     Route: 065
     Dates: start: 20250419
  3. HEPARIN [Concomitant]
     Active Substance: HEPARIN SODIUM
     Indication: Product used for unknown indication
     Route: 065
  4. MEROPENEM [Concomitant]
     Active Substance: MEROPENEM
     Indication: Endocarditis bacterial
     Dosage: 190 MILLIGRAM, Q4H
     Route: 065
     Dates: start: 20250418

REACTIONS (5)
  - Liver function test abnormal [Unknown]
  - Hepatotoxicity [Recovered/Resolved with Sequelae]
  - Aspartate aminotransferase increased [Unknown]
  - Alanine aminotransferase increased [Unknown]
  - Coagulopathy [Unknown]

NARRATIVE: CASE EVENT DATE: 20250422
